FAERS Safety Report 9047447 (Version 1)
Quarter: 2013Q1

REPORT INFORMATION
  Report Type: Report from Study
  Country: US (occurrence: US)
  Receive Date: 20130201
  Receipt Date: 20130201
  Transmission Date: 20140127
  Serious: No
  Sender: FDA-Public Use
  Company Number: US-ABBOTT-12P-163-0990636-00

PATIENT
  Age: 59 Year
  Sex: Female

DRUGS (21)
  1. HUMIRA [Suspect]
     Indication: CROHN^S DISEASE
     Route: 058
     Dates: start: 20120917, end: 20120917
  2. HUMIRA [Suspect]
     Route: 058
     Dates: start: 20121001, end: 20121001
  3. HUMIRA [Suspect]
     Route: 058
     Dates: start: 20121015
  4. VIIBRYD [Concomitant]
     Indication: ANXIETY
     Dosage: AT BEDTIME
  5. DIAZEPAM [Concomitant]
     Indication: INSOMNIA
     Dosage: IN AM
  6. DIAZEPAM [Concomitant]
     Indication: ANXIETY
     Dosage: AT HS
  7. TRAMADOL [Concomitant]
     Indication: PAIN
  8. PENTASA [Concomitant]
     Indication: CROHN^S DISEASE
     Route: 048
  9. ESTRACE [Concomitant]
     Indication: VULVOVAGINAL DRYNESS
  10. B-12 SHOT [Concomitant]
     Indication: PRODUCT USED FOR UNKNOWN INDICATION
     Dosage: EVERY MONTH
  11. BACTROBAN [Concomitant]
     Indication: MUCOSAL DRYNESS
  12. OCEAN SPRAY NASAL SPRAY [Concomitant]
     Indication: HYPERSENSITIVITY
  13. METAMUCIL [Concomitant]
     Indication: HAEMORRHOIDS
     Dosage: EVERY DAY
  14. METAMUCIL [Concomitant]
     Indication: BOWEL MOVEMENT IRREGULARITY
  15. UNKNOWN HEMORROID CREAM [Concomitant]
     Indication: BOWEL MOVEMENT IRREGULARITY
  16. UNKNOWN HEMORROID CREAM [Concomitant]
     Indication: HAEMORRHOIDS
  17. LIDOCAINE 3% [Concomitant]
     Indication: HAEMORRHOIDS
  18. LIDOCAINE 3% [Concomitant]
     Indication: BOWEL MOVEMENT IRREGULARITY
  19. HYDROCORTISONE [Concomitant]
     Indication: HAEMORRHOIDS
  20. HYDROCORTISONE [Concomitant]
     Indication: BOWEL MOVEMENT IRREGULARITY
  21. SIMPLY SALINE NASAL SOLUTION [Concomitant]
     Indication: HYPERSENSITIVITY

REACTIONS (5)
  - Depression [Not Recovered/Not Resolved]
  - Urinary tract infection [Recovered/Resolved]
  - Abdominal pain upper [Not Recovered/Not Resolved]
  - Crying [Not Recovered/Not Resolved]
  - Feelings of worthlessness [Not Recovered/Not Resolved]
